FAERS Safety Report 6982341-7 (Version None)
Quarter: 2010Q3

REPORT INFORMATION
  Report Type: 
  Country: None (occurrence: None)
  Receive Date: 20100914
  Receipt Date: 20100112
  Transmission Date: 20110219
  Serious: No
  Sender: FDA-Public Use
  Company Number: US-PFIZER INC-2009276281

PATIENT
  Sex: Female
  Weight: 54.4 kg

DRUGS (2)
  1. LYRICA [Suspect]
     Indication: NEUROPATHY PERIPHERAL
     Dosage: UNK
     Dates: start: 20061001
  2. LYRICA [Suspect]
     Indication: KNEE ARTHROPLASTY

REACTIONS (2)
  - ASTHMA [None]
  - MALAISE [None]
